FAERS Safety Report 8410341-9 (Version None)
Quarter: 2012Q2

REPORT INFORMATION
  Report Type: 
  Country: None (occurrence: None)
  Receive Date: 20120323
  Receipt Date: 20111202
  Transmission Date: 20120825
  Serious: Yes (Hospitalization)
  Sender: FDA-Public Use
  Company Number: 163-21880-11120504

PATIENT
  Age: 61 Year
  Sex: Male

DRUGS (10)
  1. COUMADIN [Concomitant]
  2. ALLOPURINOL [Concomitant]
  3. AMLODIPINE BESYLATE [Concomitant]
  4. OXCODONE HCL (OXYCODONE HYDROCLORIDE) [Concomitant]
  5. REVLIMID [Suspect]
     Indication: MULTIPLE MYELOMA
     Dosage: 25 MG, DAILY X 21 DAYS, PO
     Route: 048
     Dates: start: 20111103, end: 20110101
  6. ACYCLOVIR [Concomitant]
  7. CIPRO [Concomitant]
  8. PROTONIX [Concomitant]
  9. COREG [Concomitant]
  10. OXYCONTIN [Concomitant]

REACTIONS (2)
  - HEART RATE IRREGULAR [None]
  - DYSPNOEA [None]
